FAERS Safety Report 7595886-6 (Version None)
Quarter: 2011Q3

REPORT INFORMATION
  Report Type: 
  Country: None (occurrence: None)
  Receive Date: 20110707
  Receipt Date: 20110628
  Transmission Date: 20111222
  Serious: Yes (Other)
  Sender: FDA-Public Use
  Company Number: PHHY2011DK58065

PATIENT
  Sex: Male

DRUGS (3)
  1. PREDNISOLONE [Suspect]
  2. REMICADE [Suspect]
     Indication: RHEUMATOID ARTHRITIS
     Dosage: 200 MG, UNK
     Dates: start: 20080404, end: 20100827
  3. METHOTREXATE [Suspect]
     Dosage: UNK
     Route: 048
     Dates: start: 20080404, end: 20100827

REACTIONS (1)
  - CARCINOMA IN SITU OF SKIN [None]
